FAERS Safety Report 6699067-X (Version None)
Quarter: 2010Q2

REPORT INFORMATION
  Report Type: 
  Country: None (occurrence: None)
  Receive Date: 20100427
  Receipt Date: 20100416
  Transmission Date: 20101027
  Serious: Yes (Hospitalization, Disabling)
  Sender: FDA-Public Use
  Company Number: US-CELGENEUS-163-20785-10030373

PATIENT
  Sex: Female

DRUGS (11)
  1. THALOMID [Suspect]
     Indication: MULTIPLE MYELOMA
     Route: 048
     Dates: start: 20091106, end: 20091220
  2. VELCADE [Suspect]
     Indication: MULTIPLE MYELOMA
     Route: 050
     Dates: start: 20091106, end: 20091210
  3. DEXAMETHASONE [Suspect]
     Indication: MULTIPLE MYELOMA
     Route: 065
  4. MICARDIS [Concomitant]
     Indication: HYPERTENSION
     Route: 048
     Dates: start: 20050101
  5. ADALAT [Concomitant]
     Indication: HYPERTENSION
     Route: 048
     Dates: start: 20070101
  6. MAXZIDE [Concomitant]
     Dosage: 75/50MG
     Route: 048
     Dates: start: 19990101
  7. POTASSIUM [Concomitant]
     Route: 048
     Dates: start: 20090101
  8. ASPIRIN [Concomitant]
     Indication: PROPHYLAXIS
     Route: 048
     Dates: start: 20080101
  9. GABAPENTIN [Concomitant]
     Route: 065
     Dates: start: 20090101
  10. ARANESP [Concomitant]
     Route: 065
     Dates: start: 20090101
  11. NEXIUM [Concomitant]
     Route: 065
     Dates: start: 20030101

REACTIONS (4)
  - ASTHENIA [None]
  - BONE PAIN [None]
  - FATIGUE [None]
  - NEUROPATHY PERIPHERAL [None]
